FAERS Safety Report 6082457-6 (Version None)
Quarter: 2009Q1

REPORT INFORMATION
  Report Type: 
  Country: None (occurrence: None)
  Receive Date: 20090218
  Receipt Date: 20090205
  Transmission Date: 20090719
  Serious: Yes (Other)
  Sender: FDA-Public Use
  Company Number: US-ROCHE-612918

PATIENT
  Sex: Female
  Weight: 60.3 kg

DRUGS (1)
  1. CAPECITABINE [Suspect]
     Indication: COLORECTAL CANCER
     Route: 065
     Dates: start: 20080920, end: 20090128

REACTIONS (2)
  - DIARRHOEA [None]
  - MYELODYSPLASTIC SYNDROME [None]
